FAERS Safety Report 23748146 (Version 7)
Quarter: 2025Q1

REPORT INFORMATION
  Report Type: Report from Study
  Country: CO (occurrence: CO)
  Receive Date: 20240416
  Receipt Date: 20250129
  Transmission Date: 20250409
  Serious: Yes (Other)
  Sender: NOVARTIS
  Company Number: CO-002147023-NVSC2024CO078318

PATIENT
  Sex: Male
  Weight: 65 kg

DRUGS (2)
  1. COSENTYX [Suspect]
     Active Substance: SECUKINUMAB
     Indication: Ankylosing spondylitis
     Dosage: 150 MG, QMO
     Route: 058
     Dates: start: 20140428
  2. COSENTYX [Suspect]
     Active Substance: SECUKINUMAB
     Route: 065
     Dates: start: 20240623

REACTIONS (14)
  - Decreased immune responsiveness [Not Recovered/Not Resolved]
  - Haemorrhage [Unknown]
  - Haematochezia [Not Recovered/Not Resolved]
  - Haematuria [Not Recovered/Not Resolved]
  - Asthenia [Not Recovered/Not Resolved]
  - Headache [Not Recovered/Not Resolved]
  - Neoplasm malignant [Not Recovered/Not Resolved]
  - Incontinence [Recovered/Resolved]
  - Prostate cancer [Recovered/Resolved]
  - Malaise [Unknown]
  - Weight decreased [Unknown]
  - Discomfort [Unknown]
  - Spinal pain [Recovering/Resolving]
  - Arthralgia [Recovering/Resolving]
